FAERS Safety Report 9385872 (Version 1)
Quarter: 2013Q3

REPORT INFORMATION
  Report Type: Spontaneous
  Country: FR (occurrence: FR)
  Receive Date: 20130705
  Receipt Date: 20130705
  Transmission Date: 20140515
  Serious: Yes (Hospitalization)
  Sender: FDA-Public Use
  Company Number: FR-009507513-1307FRA000988

PATIENT
  Age: 58 Year
  Sex: Female

DRUGS (4)
  1. FOSAVANCE [Suspect]
     Dosage: UNK
     Route: 048
     Dates: start: 20081022
  2. FEMARA [Suspect]
     Indication: BREAST CANCER
     Dosage: 2.5 MG, UNK
     Route: 048
     Dates: start: 2006, end: 20081101
  3. PREVISCAN [Suspect]
     Indication: PHLEBITIS
     Dosage: UNK
     Route: 048
  4. ENDOTELON [Suspect]
     Indication: LYMPHOEDEMA
     Dosage: UNK
     Route: 048

REACTIONS (1)
  - Hepatitis [Recovered/Resolved]
